FAERS Safety Report 17161707 (Version 1)
Quarter: 2019Q4

REPORT INFORMATION
  Report Type: Spontaneous
  Country: SE (occurrence: SE)
  Receive Date: 20191217
  Receipt Date: 20191217
  Transmission Date: 20200122
  Serious: Yes (Hospitalization)
  Sender: FDA-Public Use
  Company Number: SE-009507513-1912SWE004313

PATIENT
  Age: 32 Year
  Sex: Male

DRUGS (3)
  1. MIRTAZAPINE. [Suspect]
     Active Substance: MIRTAZAPINE
     Dosage: 1 (UNITS NOT PROVIDED), ONCE, (TOTAL)
     Dates: start: 20191112, end: 20191112
  2. LERGIGAN [PROMETHAZINE HYDROCHLORIDE] [Suspect]
     Active Substance: PROMETHAZINE HYDROCHLORIDE
     Dosage: 1 (UNITS NOT PROVIDED), ONCE, (TOTAL)
     Dates: start: 20191112, end: 20191112
  3. TRAMADOL HYDROCHLORIDE. [Suspect]
     Active Substance: TRAMADOL HYDROCHLORIDE
     Dosage: 1 (UNITS NOT PROVIDED), ONCE, (TOTAL)
     Dates: start: 20191112, end: 20191112

REACTIONS (5)
  - Intentional overdose [Unknown]
  - Dizziness [Unknown]
  - Toxicity to various agents [Unknown]
  - Fatigue [Unknown]
  - Intentional self-injury [Unknown]

NARRATIVE: CASE EVENT DATE: 201911
